FAERS Safety Report 7631683-0 (Version None)
Quarter: 2011Q3

REPORT INFORMATION
  Report Type: 
  Country: None (occurrence: None)
  Receive Date: 20110725
  Receipt Date: 20110216
  Transmission Date: 20111222
  Serious: No
  Sender: FDA-Public Use
  Company Number: US-BRISTOL-MYERS SQUIBB COMPANY-15553878

PATIENT
  Age: 73 Year
  Sex: Female

DRUGS (4)
  1. LIPITOR [Concomitant]
  2. COUMADIN [Suspect]
     Dosage: 10MG ON 15FEB2011.NORMALLY 5MG/DAILY.
  3. NORVASC [Concomitant]
  4. TOPROL-XL [Concomitant]

REACTIONS (1)
  - MEDICATION ERROR [None]
